FAERS Safety Report 17582788 (Version 1)
Quarter: 2020Q1

REPORT INFORMATION
  Report Type: Spontaneous
  Country: FR (occurrence: FR)
  Receive Date: 20200325
  Receipt Date: 20200325
  Transmission Date: 20200409
  Serious: Yes (Hospitalization)
  Sender: FDA-Public Use
  Company Number: FR-ANIPHARMA-2020-FR-000092

PATIENT
  Age: 67 Year
  Sex: Male

DRUGS (7)
  1. BACLOFEN. [Suspect]
     Active Substance: BACLOFEN
     Dosage: 40 MG UNK
     Route: 048
     Dates: start: 20200227, end: 20200227
  2. LEVETIRACETAM. [Suspect]
     Active Substance: LEVETIRACETAM
     Dosage: 1000 MG UNK
     Route: 048
     Dates: start: 20200227, end: 20200227
  3. CANDESARTAN. [Suspect]
     Active Substance: CANDESARTAN
     Indication: HYPERTENSION
     Dosage: 8 MG UNK
     Route: 048
     Dates: start: 20200227, end: 20200227
  4. METFORMIN HYDROCHLORIDE. [Suspect]
     Active Substance: METFORMIN HYDROCHLORIDE
     Dosage: 2 G UNK
     Route: 048
     Dates: start: 20200227, end: 20200227
  5. LYRICA [Suspect]
     Active Substance: PREGABALIN
     Dosage: 600 MG UNK
     Route: 048
     Dates: start: 20200227, end: 20200227
  6. PAROXETINE. [Suspect]
     Active Substance: PAROXETINE
     Dosage: 30 MG UNK
     Route: 048
     Dates: start: 20200227, end: 20200227
  7. ZAMUDOL LP [Suspect]
     Active Substance: TRAMADOL HYDROCHLORIDE
     Dosage: 200 MG UNK
     Route: 048
     Dates: start: 20200227, end: 20200227

REACTIONS (4)
  - Respiratory acidosis [Recovered/Resolved]
  - Product administration error [Recovered/Resolved]
  - Somnolence [Recovered/Resolved]
  - Euphoric mood [Recovered/Resolved]

NARRATIVE: CASE EVENT DATE: 20200227
